FAERS Safety Report 6473009-4 (Version None)
Quarter: 2009Q4

REPORT INFORMATION
  Report Type: 
  Country: None (occurrence: None)
  Receive Date: 20091204
  Receipt Date: 20091125
  Transmission Date: 20100525
  Serious: Yes (Hospitalization)
  Sender: FDA-Public Use
  Company Number: US-BIOGENIDEC-2009BI038833

PATIENT
  Age: 44 Year
  Sex: Male

DRUGS (5)
  1. TYSABRI [Suspect]
     Indication: MULTIPLE SCLEROSIS
     Route: 042
     Dates: start: 20070419, end: 20091029
  2. SANCTURA [Concomitant]
     Indication: NEUROGENIC BLADDER
     Route: 048
  3. AMANTADINE [Concomitant]
     Indication: HEADACHE
     Route: 048
  4. CIALIS [Concomitant]
     Indication: ERECTILE DYSFUNCTION
     Route: 048
  5. VICODIN [Concomitant]
     Indication: PAIN

REACTIONS (1)
  - CONVULSION [None]
